FAERS Safety Report 22008587 (Version 1)
Quarter: 2023Q1

REPORT INFORMATION
  Report Type: Spontaneous
  Country: US (occurrence: None)
  Receive Date: 20230219
  Receipt Date: 20230219
  Transmission Date: 20230418
  Serious: Yes (Hospitalization)
  Sender: FDA-Public Use
  Company Number: US-ROCHE-3287672

PATIENT
  Age: 54 Year
  Sex: Female

DRUGS (4)
  1. PEGASYS [Suspect]
     Active Substance: PEGINTERFERON ALFA-2A
     Indication: Polycythaemia vera
     Dosage: 45 MICROGRAM EVERY 1 WEEK(S)
     Route: 058
     Dates: start: 2011, end: 2023
  2. DEXILANT [Concomitant]
     Active Substance: DEXLANSOPRAZOLE
  3. LIPITOR [Concomitant]
     Active Substance: ATORVASTATIN CALCIUM
  4. XARELTO [Concomitant]
     Active Substance: RIVAROXABAN

REACTIONS (7)
  - Haemolytic anaemia [Not Recovered/Not Resolved]
  - Blood bilirubin increased [Recovered/Resolved]
  - Thrombosis [Unknown]
  - Haemoglobin decreased [Recovered/Resolved]
  - Off label use [Unknown]
  - Fatigue [Unknown]
  - Headache [Unknown]

NARRATIVE: CASE EVENT DATE: 20110101
